FAERS Safety Report 6933306-2 (Version None)
Quarter: 2010Q3

REPORT INFORMATION
  Report Type: 
  Country: None (occurrence: None)
  Receive Date: 20100820
  Receipt Date: 20100721
  Transmission Date: 20110219
  Serious: No
  Sender: FDA-Public Use
  Company Number: US-BAYER-201028833NA

PATIENT
  Age: 31 Year
  Sex: Female

DRUGS (2)
  1. MIRENA [Suspect]
     Indication: CONTRACEPTION
     Dosage: FREQUENCY:CONTINUOUS
     Route: 015
     Dates: start: 20091230
  2. VICODIN [Concomitant]
     Indication: PAIN
     Dates: start: 20100701

REACTIONS (4)
  - AMENORRHOEA [None]
  - FATIGUE [None]
  - NAUSEA [None]
  - VOMITING [None]
